FAERS Safety Report 12818988 (Version 4)
Quarter: 2016Q4

REPORT INFORMATION
  Report Type: Spontaneous
  Country: JP (occurrence: JP)
  Receive Date: 20161006
  Receipt Date: 20161216
  Transmission Date: 20170207
  Serious: Yes (Life-Threatening, Hospitalization, Other)
  Sender: FDA-Public Use
  Company Number: JP-GLAXOSMITHKLINE-JP2016JPN144764

PATIENT
  Age: 16 Year
  Sex: Male
  Weight: 65 kg

DRUGS (5)
  1. CALONAL [Concomitant]
     Active Substance: ACETAMINOPHEN
     Indication: PYREXIA
     Dosage: UNK
     Dates: start: 20150604
  2. MEIACT MS [Concomitant]
     Active Substance: CEFDITOREN PIVOXIL
     Indication: TONSILLITIS
     Dosage: UNK
     Dates: start: 20150605
  3. KLARICID [Concomitant]
     Active Substance: CLARITHROMYCIN
     Dosage: UNK
     Dates: start: 20150604
  4. VALTREX [Suspect]
     Active Substance: VALACYCLOVIR HYDROCHLORIDE
     Indication: ORAL HERPES
     Dosage: 500 MG, BID
     Route: 048
     Dates: start: 20150605, end: 20150609
  5. GASTER [Concomitant]
     Active Substance: FAMOTIDINE
     Dosage: UNK
     Dates: start: 20150604

REACTIONS (7)
  - Urine output decreased [Recovering/Resolving]
  - Haemolytic anaemia [Recovering/Resolving]
  - Haemolytic uraemic syndrome [Recovered/Resolved]
  - Renal impairment [Recovering/Resolving]
  - Thrombotic microangiopathy [Recovering/Resolving]
  - Weight decreased [Unknown]
  - Platelet count decreased [Recovering/Resolving]

NARRATIVE: CASE EVENT DATE: 20150610
